FAERS Safety Report 22279935 (Version 2)
Quarter: 2023Q2

REPORT INFORMATION
  Report Type: Spontaneous
  Country: US (occurrence: None)
  Receive Date: 20230503
  Receipt Date: 20230629
  Transmission Date: 20230721
  Serious: Yes (Hospitalization, Other)
  Sender: FDA-Public Use
  Company Number: 2023A098059

PATIENT
  Age: 55 Year
  Sex: Male
  Weight: 74.8 kg

DRUGS (7)
  1. OLAPARIB [Suspect]
     Active Substance: OLAPARIB
     Indication: Prostate cancer metastatic
     Route: 048
     Dates: start: 20230106, end: 20230124
  2. LURASIDONE HYDROCHLORIDE [Concomitant]
     Active Substance: LURASIDONE HYDROCHLORIDE
     Dates: start: 20201026
  3. VTLAZODONE HYDROCHLORTDE [Concomitant]
     Dates: start: 20201026
  4. ONDANSETRON [Concomitant]
     Active Substance: ONDANSETRON
     Dates: start: 20230110
  5. CLONIDINE [Concomitant]
     Active Substance: CLONIDINE
     Dates: start: 20230114, end: 20230114
  6. LOPERAMIDE [Concomitant]
     Active Substance: LOPERAMIDE
     Dates: start: 20230120, end: 20230129
  7. LEUPROLIDE ACETATE [Concomitant]
     Active Substance: LEUPROLIDE ACETATE
     Dates: start: 20201127

REACTIONS (13)
  - Pneumonitis [Recovered/Resolved]
  - Toxicity to various agents [Unknown]
  - Chills [Unknown]
  - Cytopenia [Unknown]
  - Weight decreased [Unknown]
  - Dry mouth [Unknown]
  - Dehydration [Unknown]
  - Diarrhoea [Unknown]
  - Decreased appetite [Unknown]
  - Fatigue [Unknown]
  - Rash [Unknown]
  - Rash pruritic [Unknown]
  - Rash maculo-papular [Unknown]

NARRATIVE: CASE EVENT DATE: 20230129
